FAERS Safety Report 5013646-7 (Version None)
Quarter: 2006Q2

REPORT INFORMATION
  Report Type: 
  Country: None (occurrence: None)
  Receive Date: 20060525
  Receipt Date: 20060518
  Transmission Date: 20061013
  Serious: Yes (Death)
  Sender: FDA-Public Use
  Company Number: HQWYE414519MAY06

PATIENT
  Age: 29 Year
  Sex: Male

DRUGS (2)
  1. EFFEXOR XR [Suspect]
     Indication: ANXIETY
     Dosage: SEE IMAGE
     Dates: start: 20060401, end: 20060507
  2. EFFEXOR XR [Suspect]
     Indication: ANXIETY
     Dosage: SEE IMAGE
     Dates: start: 20060508, end: 20060512

REACTIONS (8)
  - AGGRESSION [None]
  - COMPLETED SUICIDE [None]
  - DEPRESSION [None]
  - DISINHIBITION [None]
  - GUN SHOT WOUND [None]
  - HEAD INJURY [None]
  - OBSESSIVE THOUGHTS [None]
  - SUICIDAL IDEATION [None]
